FAERS Safety Report 11175598 (Version 6)
Quarter: 2015Q3

REPORT INFORMATION
  Report Type: Spontaneous
  Country: US (occurrence: US)
  Receive Date: 20150609
  Receipt Date: 20150924
  Transmission Date: 20151125
  Serious: Yes (Death, Hospitalization, Other)
  Sender: FDA-Public Use
  Company Number: US-OTSUKA-US-2015-11415

PATIENT

DRUGS (8)
  1. CELEXA [Concomitant]
     Active Substance: CITALOPRAM HYDROBROMIDE
     Indication: PRODUCT USED FOR UNKNOWN INDICATION
     Dosage: 40 MG, QAM
     Route: 065
  2. ABILIFY MAINTENA [Suspect]
     Active Substance: ARIPIPRAZOLE
     Indication: SCHIZOAFFECTIVE DISORDER
     Dosage: 400 MG, EVERY 28 DAYS
     Route: 030
     Dates: start: 20141230, end: 20141230
  3. TRAZODONE [Concomitant]
     Active Substance: TRAZODONE HYDROCHLORIDE
     Indication: PRODUCT USED FOR UNKNOWN INDICATION
     Dosage: 150 MG,QHS
  4. ABILIFY MAINTENA [Suspect]
     Active Substance: ARIPIPRAZOLE
     Dosage: 400 MG, EVERY 28 DAYS
     Route: 030
     Dates: start: 20150225, end: 20150225
  5. ABILIFY MAINTENA [Suspect]
     Active Substance: ARIPIPRAZOLE
     Dosage: 400 MG, EVERY 28 DAYS
     Route: 030
     Dates: start: 20150324, end: 20150324
  6. ABILIFY MAINTENA [Suspect]
     Active Substance: ARIPIPRAZOLE
     Dosage: 400 MG, EVERY 4 WEEKS
     Route: 030
     Dates: start: 20150507
  7. ABILIFY MAINTENA [Suspect]
     Active Substance: ARIPIPRAZOLE
     Dosage: 400 MG, EVERY 28 DAYS
     Route: 030
     Dates: start: 20150127, end: 20150127
  8. COGENTIN [Concomitant]
     Active Substance: BENZTROPINE MESYLATE
     Indication: PRODUCT USED FOR UNKNOWN INDICATION
     Dosage: 1 MG, BID
     Route: 065

REACTIONS (6)
  - Depression [Unknown]
  - Aneurysm [Fatal]
  - Hospitalisation [Unknown]
  - Confusional state [Unknown]
  - Off label use [Unknown]
  - Hallucinations, mixed [Unknown]

NARRATIVE: CASE EVENT DATE: 20150530
